FAERS Safety Report 17291594 (Version 1)
Quarter: 2020Q1

REPORT INFORMATION
  Report Type: Spontaneous
  Country: KR (occurrence: KR)
  Receive Date: 20200121
  Receipt Date: 20200121
  Transmission Date: 20200409
  Serious: Yes (Other)
  Sender: FDA-Public Use
  Company Number: KR-BAYER-2019-237217

PATIENT
  Sex: Female

DRUGS (1)
  1. YAZ [Suspect]
     Active Substance: DROSPIRENONE\ETHINYL ESTRADIOL
     Indication: MENSTRUATION IRREGULAR
     Dosage: 1 UNK
     Dates: start: 20191202

REACTIONS (3)
  - Off label use [None]
  - Genital haemorrhage [None]
  - Product use in unapproved indication [None]

NARRATIVE: CASE EVENT DATE: 20191225
